FAERS Safety Report 7407387-6 (Version None)
Quarter: 2011Q2

REPORT INFORMATION
  Report Type: 
  Country: None (occurrence: None)
  Receive Date: 20110411
  Receipt Date: 20110330
  Transmission Date: 20111010
  Serious: Yes (Congenital Anomaly)
  Sender: FDA-Public Use
  Company Number: JP-MERCK-1103USA01800B1

PATIENT
  Sex: Male
  Weight: 4 kg

DRUGS (4)
  1. DECADRON [Suspect]
     Route: 064
     Dates: start: 20090318, end: 20090322
  2. DECADRON [Suspect]
     Route: 064
     Dates: start: 20090323, end: 20090327
  3. DECADRON [Suspect]
     Route: 064
     Dates: start: 20090209, end: 20090317
  4. DECADRON [Suspect]
     Route: 064
     Dates: start: 20090328, end: 20090402

REACTIONS (3)
  - POLYDACTYLY [None]
  - MATERNAL DRUGS AFFECTING FOETUS [None]
  - DRUG EXPOSURE DURING PREGNANCY [None]
